FAERS Safety Report 6585388-8 (Version None)
Quarter: 2010Q1

REPORT INFORMATION
  Report Type: 
  Country: None (occurrence: None)
  Receive Date: 20100217
  Receipt Date: 20080915
  Transmission Date: 20100710
  Serious: Yes (Other)
  Sender: FDA-Public Use
  Company Number: A0737571B

PATIENT
  Sex: Male
  Weight: 68.2 kg

DRUGS (11)
  1. LAPATINIB [Suspect]
     Dosage: 1500MG PER DAY
     Route: 048
     Dates: start: 20080527
  2. CISPLATIN [Suspect]
     Route: 042
  3. RADIOTHERAPY [Suspect]
     Route: 061
  4. CYCLIZINE [Concomitant]
     Indication: NAUSEA
     Dosage: 50MG AS REQUIRED
     Route: 048
     Dates: start: 20080630
  5. PARACETAMOL [Concomitant]
     Indication: ANALGESIC THERAPY
     Dosage: 1000MG AS REQUIRED
     Route: 048
  6. LANSOPRAZOLE [Concomitant]
     Indication: PROPHYLAXIS
     Dosage: 30MG PER DAY
     Route: 048
     Dates: start: 19990101
  7. SANDOCAL [Concomitant]
     Indication: SUPPLEMENTATION THERAPY
     Dosage: 400MG TWICE PER DAY
     Route: 048
     Dates: start: 20080723, end: 20080724
  8. MST [Concomitant]
     Indication: ANALGESIC THERAPY
     Dosage: 20MG TWICE PER DAY
     Route: 048
     Dates: start: 20080702
  9. ORAMORPH SR [Concomitant]
     Indication: ANALGESIC THERAPY
     Route: 048
     Dates: start: 20080701
  10. CALCIUM GLUCONATE [Concomitant]
  11. ALBUTEROL [Concomitant]
     Route: 055

REACTIONS (3)
  - DEHYDRATION [None]
  - ELECTROCARDIOGRAM ABNORMAL [None]
  - HYPERKALAEMIA [None]
